FAERS Safety Report 11753904 (Version 1)
Quarter: 2015Q4

REPORT INFORMATION
  Report Type: Spontaneous
  Country: US (occurrence: US)
  Receive Date: 20151119
  Receipt Date: 20151119
  Transmission Date: 20160304
  Serious: Yes (Hospitalization, Other)
  Sender: FDA-Public Use
  Company Number: PHEH2015US023841

PATIENT

DRUGS (2)
  1. FARYDAK [Suspect]
     Active Substance: PANOBINOSTAT
     Indication: PLASMA CELL MYELOMA
     Dosage: 20 MG, 3 DAYS THE 1ST WEEK, 2 DAYS THE 2ND WEEK, OFF THE 3RD WEEK FOR A 21 DAY CYCLE
     Route: 048
  2. FARYDAK [Suspect]
     Active Substance: PANOBINOSTAT
     Dosage: 10 MG, UNK
     Route: 048

REACTIONS (1)
  - Diarrhoea [Recovered/Resolved]
